FAERS Safety Report 5364201-0 (Version None)
Quarter: 2007Q2

REPORT INFORMATION
  Report Type: 
  Country: None (occurrence: None)
  Receive Date: 20070620
  Receipt Date: 20070613
  Transmission Date: 20071010
  Serious: Yes (Hospitalization, Other)
  Sender: FDA-Public Use
  Company Number: US-ROXANE LABORATORIES, INC-2004-BP-12000IM

PATIENT
  Sex: Female

DRUGS (21)
  1. INTERFERON GAMMA - 1B SOLUTION [Suspect]
     Indication: IDIOPATHIC PULMONARY FIBROSIS
     Route: 058
     Dates: start: 20031203, end: 20041110
  2. INTERFERON GAMMA - 1B SOLUTION [Suspect]
     Route: 058
     Dates: start: 20041117, end: 20041210
  3. INTERFERON GAMMA - 1B SOLUTION [Suspect]
     Route: 058
     Dates: start: 20050110, end: 20050509
  4. INTERFERON GAMMA - 1B SOLUTION [Suspect]
     Route: 058
     Dates: start: 20050513, end: 20070221
  5. PREDNISONE TAB [Suspect]
     Indication: IDIOPATHIC PULMONARY FIBROSIS
     Route: 048
     Dates: start: 20010503, end: 20070201
  6. INDAPAMIDE [Concomitant]
     Route: 048
     Dates: start: 19980101
  7. LIPITOR [Concomitant]
     Route: 048
     Dates: start: 19980101
  8. SYNTHROID [Concomitant]
     Route: 048
     Dates: start: 20060101
  9. OMEPRAZOLE [Concomitant]
     Route: 048
     Dates: start: 20060101
  10. PREMPRO [Concomitant]
     Route: 048
  11. ALLEGRA [Concomitant]
     Route: 048
     Dates: start: 20020101
  12. ZETIA [Concomitant]
     Route: 048
     Dates: start: 20010101
  13. VITAMIN CAP [Concomitant]
     Route: 048
     Dates: start: 19800101
  14. CALCIUM WITH VITAMIN D [Concomitant]
     Route: 048
  15. GLUCOSAMINE W/CHONDROITIN SULFATES [Concomitant]
     Route: 048
     Dates: start: 19990101
  16. FISH OIL [Concomitant]
     Route: 048
     Dates: start: 20030101
  17. VICODIN [Concomitant]
     Route: 048
     Dates: start: 20040901
  18. CEPHALEXIN [Concomitant]
     Route: 048
     Dates: start: 20040930, end: 20041126
  19. CELEBREX [Concomitant]
     Route: 048
     Dates: start: 20050620
  20. CIPROFLOXACIN [Concomitant]
     Route: 048
     Dates: start: 20041209, end: 20041212
  21. ARICEPT [Concomitant]
     Route: 048
     Dates: start: 20061205

REACTIONS (1)
  - POSTOPERATIVE WOUND COMPLICATION [None]
